FAERS Safety Report 18889034 (Version 1)
Quarter: 2021Q1

REPORT INFORMATION
  Report Type: Other
  Country: US (occurrence: US)
  Receive Date: 20210212
  Receipt Date: 20210212
  Transmission Date: 20210420
  Serious: No
  Sender: FDA-Public Use
  Company Number: US-ROCHE-2665750

PATIENT
  Age: 60 Year
  Sex: Female

DRUGS (2)
  1. ENTRECTINIB [Suspect]
     Active Substance: ENTRECTINIB
     Indication: LUNG ADENOCARCINOMA
     Route: 048
  2. ENTRECTINIB [Suspect]
     Active Substance: ENTRECTINIB
     Route: 048

REACTIONS (3)
  - Dizziness [Recovering/Resolving]
  - Diarrhoea [Recovering/Resolving]
  - Gait disturbance [Recovering/Resolving]
